FAERS Safety Report 8975853 (Version 1)
Quarter: 2012Q4

REPORT INFORMATION
  Report Type: 
  Country: US (occurrence: US)
  Receive Date: 20121219
  Receipt Date: 20121219
  Transmission Date: 20130627
  Serious: No
  Sender: FDA-Public Use
  Company Number: US-AMGEN-USASP2012069851

PATIENT
  Age: 80 Year
  Sex: Female

DRUGS (5)
  1. PROLIA [Suspect]
     Indication: OSTEOPOROSIS POSTMENOPAUSAL
     Dosage: UNK
     Dates: start: 20110817
  2. SYNTHROID [Concomitant]
     Dosage: 75 mug, UNK
  3. CEREFOLIN NAC [Concomitant]
  4. VITAMIN D /00107901/ [Concomitant]
     Dosage: 1000 mg, UNK
  5. CALCIUM [Concomitant]
     Dosage: 600 mg, UNK

REACTIONS (1)
  - Urticaria [Not Recovered/Not Resolved]
